FAERS Safety Report 9265560 (Version 3)
Quarter: 2013Q3

REPORT INFORMATION
  Report Type: Spontaneous
  Country: US (occurrence: US)
  Receive Date: 20130501
  Receipt Date: 20130822
  Transmission Date: 20140515
  Serious: Yes (Hospitalization, Disabling)
  Sender: FDA-Public Use
  Company Number: US-009507513-1304USA014031

PATIENT
  Sex: Female
  Weight: 79.37 kg

DRUGS (3)
  1. NUVARING [Suspect]
     Indication: CONTRACEPTION
     Dosage: UNK
     Route: 067
     Dates: start: 20070518, end: 201008
  2. TOPAMAX [Concomitant]
     Indication: MIGRAINE
     Dosage: UNK
     Dates: start: 2005
  3. SUMATRIPTAN [Concomitant]
     Indication: MIGRAINE
     Dosage: UNK
     Dates: start: 2005

REACTIONS (15)
  - Appendix disorder [Unknown]
  - Joint injury [Unknown]
  - Deep vein thrombosis [Unknown]
  - Sinus disorder [Unknown]
  - Female sterilisation [Unknown]
  - Haematuria [Unknown]
  - Amenorrhoea [Unknown]
  - Urinary tract infection [Unknown]
  - Cervicitis [Unknown]
  - Coital bleeding [Unknown]
  - Depression [Unknown]
  - Cognitive disorder [Unknown]
  - Calculus ureteric [Unknown]
  - Post-traumatic stress disorder [Unknown]
  - Ureteral stent insertion [Unknown]
